FAERS Safety Report 26127777 (Version 2)
Quarter: 2025Q4

REPORT INFORMATION
  Report Type: Spontaneous
  Country: US (occurrence: US)
  Receive Date: 20251206
  Receipt Date: 20251223
  Transmission Date: 20260118
  Serious: No
  Sender: GRAVITI PHARMACEUTICALS PRIVATE LIMITED
  Company Number: US-GRAVITIPHARMA-GRA-2511-US-SPO-0449

PATIENT

DRUGS (1)
  1. ESOMEPRAZOLE MAGNESIUM [Suspect]
     Active Substance: ESOMEPRAZOLE MAGNESIUM
     Indication: Dyspepsia
     Route: 065

REACTIONS (3)
  - Therapeutic product effect decreased [Unknown]
  - Incorrect dose administered [Unknown]
  - Product container issue [Unknown]
